FAERS Safety Report 24691302 (Version 1)
Quarter: 2024Q4

REPORT INFORMATION
  Report Type: Spontaneous
  Country: CN (occurrence: CN)
  Receive Date: 20241203
  Receipt Date: 20241203
  Transmission Date: 20250114
  Serious: Yes (Life-Threatening)
  Sender: BRACCO
  Company Number: CN-BRACCO-2024CN07410

PATIENT
  Age: 71 Year
  Sex: Male

DRUGS (1)
  1. MULTIHANCE [Suspect]
     Active Substance: GADOBENATE DIMEGLUMINE
     Indication: Magnetic resonance imaging prostate
     Dosage: 12 ML, SINGLE
     Route: 042
     Dates: start: 20241118, end: 20241118

REACTIONS (4)
  - Discomfort [Unknown]
  - Pallor [Unknown]
  - Nausea [Unknown]
  - Hyperhidrosis [Unknown]

NARRATIVE: CASE EVENT DATE: 20241118
